FAERS Safety Report 8139196-7 (Version None)
Quarter: 2012Q1

REPORT INFORMATION
  Report Type: 
  Country: None (occurrence: None)
  Receive Date: 20120215
  Receipt Date: 20120207
  Transmission Date: 20120608
  Serious: Yes (Life-Threatening, Other)
  Sender: FDA-Public Use
  Company Number: KZ-ABBOTT-11P-230-0872597-00

PATIENT
  Age: 43 Year
  Sex: Male
  Weight: 71 kg

DRUGS (6)
  1. PIPECURONIUM [Concomitant]
     Indication: INDUCTION OF ANAESTHESIA
     Dates: start: 20111102
  2. SEVOFLURANE [Suspect]
     Indication: GENERAL ANAESTHESIA
     Dates: start: 20111102, end: 20111102
  3. PIPECURONIUM [Concomitant]
     Indication: MUSCLE RELAXANT THERAPY
  4. FENLANILI [Concomitant]
     Indication: INDUCTION AND MAINTENANCE OF ANAESTHESIA
     Dates: start: 20111102
  5. SUCSAMETONI [Concomitant]
     Indication: INDUCTION OF ANAESTHESIA
     Dates: start: 20111102
  6. SUCSAMETONI [Concomitant]
     Indication: MUSCLE RELAXANT THERAPY

REACTIONS (4)
  - ATRIAL FIBRILLATION [None]
  - VENTRICULAR FIBRILLATION [None]
  - CARDIAC ARREST [None]
  - HYPOKALAEMIA [None]
